FAERS Safety Report 9314858 (Version 1)
Quarter: 2013Q2

REPORT INFORMATION
  Report Type: Spontaneous
  Country: US (occurrence: US)
  Receive Date: 20130529
  Receipt Date: 20130529
  Transmission Date: 20140414
  Serious: Yes (Hospitalization)
  Sender: FDA-Public Use
  Company Number: US-UCBSA-086628

PATIENT
  Age: 60 Year
  Sex: Female

DRUGS (1)
  1. CIMZIA [Suspect]
     Indication: RHEUMATOID ARTHRITIS
     Dates: start: 201206, end: 201304

REACTIONS (1)
  - Urinary tract infection [Unknown]
